FAERS Safety Report 10561060 (Version 2)
Quarter: 2015Q1

REPORT INFORMATION
  Report Type: Spontaneous
  Country: US (occurrence: US)
  Receive Date: 20141103
  Receipt Date: 20150128
  Transmission Date: 20150720
  Serious: Yes (Other)
  Sender: FDA-Public Use
  Company Number: US-BAYER-2014-158516

PATIENT
  Age: 9 Year
  Sex: Male

DRUGS (1)
  1. KOGENATE FS [Suspect]
     Active Substance: ANTIHEMOPHILIC FACTOR, HUMAN RECOMBINANT
     Indication: FACTOR VIII DEFICIENCY
     Dosage: 759
     Route: 042
     Dates: start: 20140927

REACTIONS (3)
  - Haemarthrosis [Recovered/Resolved]
  - Contusion [Recovered/Resolved]
  - Muscle haemorrhage [None]

NARRATIVE: CASE EVENT DATE: 20141006
